FAERS Safety Report 6700447-4 (Version None)
Quarter: 2010Q2

REPORT INFORMATION
  Report Type: 
  Country: None (occurrence: None)
  Receive Date: 20100428
  Receipt Date: 20100412
  Transmission Date: 20101027
  Serious: No
  Sender: FDA-Public Use
  Company Number: US-B.I. PHARMACEUTICALS,INC./RIDGEFIELD-2010-BP-04279BP

PATIENT
  Sex: Male
  Weight: 113.4 kg

DRUGS (2)
  1. MICARDIS [Suspect]
     Indication: HYPERTENSION
     Dosage: 40 MG
     Route: 048
     Dates: start: 20100125, end: 20100209
  2. HYDROCODONE BITARTRATE [Concomitant]
     Dosage: 10 MG

REACTIONS (3)
  - ARTHRALGIA [None]
  - MUSCULOSKELETAL PAIN [None]
  - PRODUCTIVE COUGH [None]
